FAERS Safety Report 14062801 (Version 2)
Quarter: 2017Q4

REPORT INFORMATION
  Report Type: Report from Study
  Country: JP (occurrence: JP)
  Receive Date: 20171009
  Receipt Date: 20171129
  Transmission Date: 20180321
  Serious: Yes (Hospitalization)
  Sender: FDA-Public Use
  Company Number: JP-ACTELION-A-CH2017-158984

PATIENT
  Age: 85 Year
  Sex: Female

DRUGS (11)
  1. DORNER [Suspect]
     Active Substance: BERAPROST SODIUM
     Indication: SKIN ULCER
     Dosage: 120 ?G, QD
     Route: 048
     Dates: start: 20170327, end: 20170405
  2. MAGMITT [Concomitant]
     Active Substance: MAGNESIUM OXIDE
  3. PARIET [Concomitant]
     Active Substance: RABEPRAZOLE SODIUM
  4. TRACLEER [Suspect]
     Active Substance: BOSENTAN
     Dosage: 62.5 MG, BID
     Route: 048
     Dates: start: 20170825, end: 20170908
  5. PROCYLIN [Concomitant]
     Active Substance: BERAPROST SODIUM
  6. URSO [Concomitant]
     Active Substance: URSODIOL
  7. LIPITOR [Concomitant]
     Active Substance: ATORVASTATIN CALCIUM
  8. THYRADIN [Concomitant]
     Active Substance: LEVOTHYROXINE
  9. HERBESSER [Suspect]
     Active Substance: DILTIAZEM HYDROCHLORIDE
     Indication: RAYNAUD^S PHENOMENON
     Dosage: 100 MG, QD
     Route: 048
     Dates: start: 20170406, end: 20170420
  10. TRACLEER [Suspect]
     Active Substance: BOSENTAN
     Indication: SCLERODERMA ASSOCIATED DIGITAL ULCER
     Dosage: 62.5 MG, BID
     Route: 048
     Dates: start: 20170418, end: 20170508
  11. LIPLE [Concomitant]
     Active Substance: ALPROSTADIL

REACTIONS (3)
  - Atrial fibrillation [Recovered/Resolved]
  - Generalised oedema [Unknown]
  - Chest discomfort [Recovered/Resolved]

NARRATIVE: CASE EVENT DATE: 20170425
